FAERS Safety Report 10391926 (Version 1)
Quarter: 2014Q3

REPORT INFORMATION
  Report Type: Report from Study
  Country: US (occurrence: US)
  Receive Date: 20140819
  Receipt Date: 20140819
  Transmission Date: 20150326
  Serious: Yes (Hospitalization, Other)
  Sender: FDA-Public Use
  Company Number: PHHY2014US100620

PATIENT
  Age: 64 Year
  Sex: Male

DRUGS (55)
  1. CEFEPIME [Suspect]
     Active Substance: CEFEPIME\CEFEPIME HYDROCHLORIDE
     Dosage: UNK UKN, UNK
  2. ALBUMIN [Concomitant]
     Active Substance: ALBUMIN (HUMAN)
     Dosage: UNK UKN, UNK
  3. GLYCOPYRROLATE. [Concomitant]
     Active Substance: GLYCOPYRROLATE
     Dosage: UNK UKN, UNK
  4. CELLCEPT [Concomitant]
     Active Substance: MYCOPHENOLATE MOFETIL\MYCOPHENOLATE MOFETIL HYDROCHLORIDE
     Dosage: UNK
  5. PRAVASTATIN [Suspect]
     Active Substance: PRAVASTATIN\PRAVASTATIN SODIUM
     Dosage: UNK UKN, UNK
  6. NYSTATIN. [Suspect]
     Active Substance: NYSTATIN
     Dosage: UNK UKN, UNK
  7. NEOSTIGMINE [Concomitant]
     Active Substance: NEOSTIGMINE
     Dosage: UNK UKN, UNK
  8. SENNOSIDE [Concomitant]
     Active Substance: SENNOSIDES
     Dosage: UNK UKN, UNK
  9. HYDROMORPHONE [Concomitant]
     Active Substance: HYDROMORPHONE
     Dosage: UNK UKN, UNK
  10. PRILOSEC [Concomitant]
     Active Substance: OMEPRAZOLE MAGNESIUM
     Dosage: UNK UKN, UNK
  11. BUMETANIDE. [Suspect]
     Active Substance: BUMETANIDE
     Dosage: UNK UKN, UNK
  12. ZOFRAN [Concomitant]
     Active Substance: ONDANSETRON HYDROCHLORIDE
     Dosage: UNK UKN, UNK
  13. SODIUM POLYSTYRENE SULFONATE. [Concomitant]
     Active Substance: SODIUM POLYSTYRENE SULFONATE
     Dosage: UNK UKN, UNK
  14. MIRALAX [Concomitant]
     Active Substance: POLYETHYLENE GLYCOL 3350
     Dosage: UNK UKN, UNK
  15. FLOMAX//MORNIFLUMATE [Concomitant]
     Dosage: UNK UKN, UNK
  16. CELLCEPT [Concomitant]
     Active Substance: MYCOPHENOLATE MOFETIL\MYCOPHENOLATE MOFETIL HYDROCHLORIDE
     Dosage: UNK UKN, UNK
  17. ANTITHYMOCYTE IMMUNOGLOBULIN [Concomitant]
     Active Substance: THYMOCYTE IMMUNE GLOBULIN NOS
     Dosage: UNK UKN, UNK
  18. BACTRIM [Concomitant]
     Active Substance: SULFAMETHOXAZOLE\TRIMETHOPRIM
     Dosage: UNK UKN, UNK
  19. TACROLIMUS. [Suspect]
     Active Substance: TACROLIMUS
     Dosage: UNK UKN, UNK
  20. CARDIZEM [Concomitant]
     Active Substance: DILTIAZEM HYDROCHLORIDE
     Dosage: UNK UKN, UNK
  21. NEPHRO-VITE [Concomitant]
     Dosage: UNK UKN, UNK
  22. FERRLECIT//FERRIC SODIUM GLUCONATE COMPLEX [Concomitant]
     Dosage: UNK UKN, UNK
  23. FUROSEMID//FUROSEMIDE [Concomitant]
     Dosage: UNK UKN, UNK
  24. SOLU-MEDROL [Concomitant]
     Active Substance: METHYLPREDNISOLONE SODIUM SUCCINATE
     Dosage: UNK UKN, UNK
  25. LISINOPRIL. [Suspect]
     Active Substance: LISINOPRIL
     Dosage: UNK UKN, UNK
  26. PREDNISONE. [Suspect]
     Active Substance: PREDNISONE
     Dosage: UNK UKN, UNK
  27. TAMSULOSIN [Suspect]
     Active Substance: TAMSULOSIN
     Dosage: UNK UKN, UNK
  28. HYTRIN [Concomitant]
     Active Substance: TERAZOSIN HYDROCHLORIDE
     Dosage: UNK UKN, UNK
  29. RENVELA [Concomitant]
     Active Substance: SEVELAMER CARBONATE
     Dosage: UNK UKN, UNK
  30. COUMADIN [Concomitant]
     Active Substance: WARFARIN SODIUM
     Dosage: UNK UKN, UNK
  31. VERSED [Concomitant]
     Active Substance: MIDAZOLAM HYDROCHLORIDE
     Dosage: UNK UKN, UNK
  32. SEVOFLURANE. [Concomitant]
     Active Substance: SEVOFLURANE
     Dosage: UNK UKN, UNK
  33. DOCUSATE [Concomitant]
     Active Substance: DOCUSATE
     Dosage: UNK UKN, UNK
  34. GANCICLOVIR [Concomitant]
     Active Substance: GANCICLOVIR
     Dosage: UNK UKN, UNK
  35. METHYLPREDNISOLONE [Concomitant]
     Active Substance: METHYLPREDNISOLONE
     Dosage: UNK UKN, UNK
  36. ANCEF [Concomitant]
     Active Substance: CEFAZOLIN SODIUM
     Dosage: UNK UKN, UNK
  37. PROPOFOL. [Concomitant]
     Active Substance: PROPOFOL
     Dosage: UNK UKN, UNK
  38. COTRIMOXAZOLE [Concomitant]
     Active Substance: SULFAMETHOXAZOLE\TRIMETHOPRIM
     Dosage: UNK UKN, UNK
  39. BACTRIM [Concomitant]
     Active Substance: SULFAMETHOXAZOLE\TRIMETHOPRIM
     Dosage: UNK UKN, UNK
  40. METOPROLOL [Suspect]
     Active Substance: METOPROLOL
     Dosage: 50 MG, BID
  41. SENSIPAR [Concomitant]
     Active Substance: CINACALCET HYDROCHLORIDE
     Dosage: UNK UKN, UNK
  42. ESMOLOL [Concomitant]
     Active Substance: ESMOLOL HYDROCHLORIDE
     Dosage: UNK UKN, UNK
  43. ROCURONIUM [Concomitant]
     Active Substance: ROCURONIUM BROMIDE
     Dosage: UNK UKN, UNK
  44. PANTOPRAZOLE [Concomitant]
     Active Substance: PANTOPRAZOLE SODIUM
     Dosage: UNK UKN, UNK
  45. HYDROCODONE BITARTRATE AND ACETAMINOPHEN [Concomitant]
     Active Substance: ACETAMINOPHEN\HYDROCODONE BITARTRATE
     Dosage: UNK UKN, UNK
  46. DESMOPRESSIN [Concomitant]
     Active Substance: DESMOPRESSIN
     Dosage: UNK UKN, UNK
  47. METOPROLOL [Suspect]
     Active Substance: METOPROLOL
     Dosage: UNK UKN, UNK
  48. LIDOCAINE. [Suspect]
     Active Substance: LIDOCAINE
     Dosage: UNK UKN, UNK
  49. SIMULECT [Suspect]
     Active Substance: BASILIXIMAB
     Dosage: UNK UKN, UNK
  50. ACETAMINOPHEN (PARACETAMOL) [Suspect]
     Active Substance: ACETAMINOPHEN
     Dosage: UNK UKN, UNK
  51. CLONIDINE. [Concomitant]
     Active Substance: CLONIDINE
     Dosage: UNK UKN, UNK
  52. NIFEDIPINE. [Concomitant]
     Active Substance: NIFEDIPINE
     Dosage: UNK UKN, UNK
  53. INSULIN GLARGINE [Concomitant]
     Active Substance: INSULIN GLARGINE
     Dosage: UNK UKN, UNK
  54. VALCYTE [Concomitant]
     Active Substance: VALGANCICLOVIR HYDROCHLORIDE
     Dosage: UNK UKN, UNK
  55. WARFARIN [Concomitant]
     Active Substance: WARFARIN
     Indication: ATRIAL FIBRILLATION
     Dosage: UNK UKN, UNK

REACTIONS (31)
  - Diarrhoea [Unknown]
  - Pseudomonas infection [Unknown]
  - International normalised ratio increased [Unknown]
  - Hyperkalaemia [Recovered/Resolved]
  - Urine output increased [Recovering/Resolving]
  - Dehydration [Recovered/Resolved]
  - Renal necrosis [Unknown]
  - Angina pectoris [Unknown]
  - Dysuria [Unknown]
  - Blood glucose increased [Recovering/Resolving]
  - Cough [Recovered/Resolved]
  - Metabolic acidosis [Unknown]
  - Procedural pain [Unknown]
  - Tachycardia [Recovering/Resolving]
  - Back pain [Unknown]
  - Wound infection [Unknown]
  - Hypotension [Unknown]
  - Complications of transplanted kidney [Recovered/Resolved]
  - Renal failure acute [Recovered/Resolved]
  - Bradycardia [Recovered/Resolved]
  - Urinary retention [Unknown]
  - Prostatomegaly [Unknown]
  - Procedural haemorrhage [Recovered/Resolved]
  - Hypervolaemia [Unknown]
  - Oliguria [Unknown]
  - Urinary tract infection [Recovered/Resolved]
  - Conjunctivitis [Recovered/Resolved]
  - Upper respiratory tract infection [Unknown]
  - Leukopenia [Recovered/Resolved]
  - Anuria [Unknown]
  - Wound dehiscence [Unknown]

NARRATIVE: CASE EVENT DATE: 20130226
